FAERS Safety Report 17975595 (Version 1)
Quarter: 2020Q3

REPORT INFORMATION
  Report Type: Report from Study
  Country: US (occurrence: US)
  Receive Date: 20200702
  Receipt Date: 20200702
  Transmission Date: 20201103
  Serious: No
  Sender: FDA-Public Use
  Company Number: NVSC2020US185194

PATIENT
  Age: 38 Year
  Sex: Male

DRUGS (1)
  1. ENTRESTO [Suspect]
     Active Substance: SACUBITRIL\VALSARTAN
     Indication: CARDIAC FAILURE
     Dosage: 97 MG, UNKNOWN
     Route: 065
     Dates: start: 202001

REACTIONS (5)
  - Hypotension [Unknown]
  - Asthenia [Unknown]
  - Restlessness [Unknown]
  - Dizziness [Unknown]
  - Panic attack [Unknown]

NARRATIVE: CASE EVENT DATE: 202002
